FAERS Safety Report 7083559-8 (Version None)
Quarter: 2010Q4

REPORT INFORMATION
  Report Type: 
  Country: None (occurrence: None)
  Receive Date: 20101104
  Receipt Date: 20101023
  Transmission Date: 20110411
  Serious: Yes (Other)
  Sender: FDA-Public Use
  Company Number: SY-ROCHE-736088

PATIENT
  Age: 20 Year
  Sex: Female

DRUGS (1)
  1. VESANOID [Suspect]
     Dosage: INDICATION : ABL PLUS DIC.  FREQUENCY REPORTED AS 4 TABS/4 HOURS
     Route: 048
     Dates: start: 20100921, end: 20101014

REACTIONS (3)
  - PAPILLOEDEMA [None]
  - VISUAL BRIGHTNESS [None]
  - VITH NERVE PARALYSIS [None]
